FAERS Safety Report 5871520-8 (Version None)
Quarter: 2008Q3

REPORT INFORMATION
  Report Type: 
  Country: None (occurrence: None)
  Receive Date: 20080905
  Receipt Date: 20080314
  Transmission Date: 20090109
  Serious: No
  Sender: FDA-Public Use
  Company Number: A0715519A

PATIENT
  Age: 70 Year
  Sex: Male

DRUGS (4)
  1. REQUIP [Suspect]
     Indication: RESTLESS LEGS SYNDROME
     Dosage: 1MG PER DAY
     Route: 048
     Dates: start: 20080101
  2. TOPROL-XL [Concomitant]
  3. ALTACE [Concomitant]
  4. ZOLOFT [Concomitant]

REACTIONS (4)
  - DIARRHOEA [None]
  - DRUG INEFFECTIVE [None]
  - FATIGUE [None]
  - WEIGHT DECREASED [None]
